FAERS Safety Report 9507352 (Version 1)
Quarter: 2013Q3

REPORT INFORMATION
  Report Type: Spontaneous
  Country: CN (occurrence: CN)
  Receive Date: 20130909
  Receipt Date: 20130909
  Transmission Date: 20140515
  Serious: Yes (Death)
  Sender: FDA-Public Use
  Company Number: CN-PFIZER INC-2013255165

PATIENT
  Age: 47 Year
  Sex: Male

DRUGS (1)
  1. SUTENT [Suspect]
     Indication: RENAL CELL CARCINOMA
     Dosage: UNK

REACTIONS (2)
  - Lung infection [Fatal]
  - Pericardial effusion [Fatal]
